FAERS Safety Report 14747877 (Version 2)
Quarter: 2019Q1

REPORT INFORMATION
  Report Type: Spontaneous
  Country: US (occurrence: US)
  Receive Date: 20180411
  Receipt Date: 20190322
  Transmission Date: 20190417
  Serious: No
  Sender: FDA-Public Use
  Company Number: US-ENDO PHARMACEUTICALS INC-2018-022071

PATIENT
  Age: 33 Year
  Sex: Male
  Weight: 117.46 kg

DRUGS (2)
  1. AVEED [Suspect]
     Active Substance: TESTOSTERONE UNDECANOATE
     Indication: HYPOGONADISM
     Dosage: 750 MG, ONCE EVERY 10WK
     Route: 030
     Dates: start: 20171016, end: 20180220
  2. AXIRON [Concomitant]
     Active Substance: TESTOSTERONE
     Indication: HYPOGONADISM

REACTIONS (3)
  - Anger [Recovered/Resolved]
  - Mood swings [Recovered/Resolved]
  - Agitation [Unknown]

NARRATIVE: CASE EVENT DATE: 201801
